FAERS Safety Report 5744716-3 (Version None)
Quarter: 2008Q2

REPORT INFORMATION
  Report Type: 
  Country: None (occurrence: None)
  Receive Date: 20080520
  Receipt Date: 20080516
  Transmission Date: 20081010
  Serious: Yes (Congenital Anomaly)
  Sender: FDA-Public Use
  Company Number: GB-ABBOTT-08P-167-0441004-00

PATIENT
  Sex: Female

DRUGS (1)
  1. VALPROIC ACID [Suspect]
     Indication: DRUG EXPOSURE DURING PREGNANCY
     Route: 064

REACTIONS (20)
  - ACROCHORDON [None]
  - ANXIETY [None]
  - AUTISM [None]
  - CLINODACTYLY [None]
  - CONDUCTIVE DEAFNESS [None]
  - CONGENITAL NOSE MALFORMATION [None]
  - CRYING [None]
  - DRUG EXPOSURE DURING PREGNANCY [None]
  - DYSMORPHISM [None]
  - EXPRESSIVE LANGUAGE DISORDER [None]
  - FOETAL ANTICONVULSANT SYNDROME [None]
  - HAND DEFORMITY [None]
  - HYPERACUSIS [None]
  - LIP DISORDER [None]
  - MENTAL RETARDATION [None]
  - OTITIS MEDIA [None]
  - PSYCHOMOTOR HYPERACTIVITY [None]
  - SOCIAL AVOIDANT BEHAVIOUR [None]
  - SPEECH DISORDER DEVELOPMENTAL [None]
  - TYMPANIC MEMBRANE DISORDER [None]
